FAERS Safety Report 8032319-X (Version None)
Quarter: 2011Q4

REPORT INFORMATION
  Report Type: 
  Country: None (occurrence: None)
  Receive Date: 20111201
  Receipt Date: 20110913
  Transmission Date: 20120403
  Serious: Yes (Other)
  Sender: FDA-Public Use
  Company Number: 201109031

PATIENT
  Age: 52 Year
  Sex: Female

DRUGS (7)
  1. LEVOXYL [Concomitant]
  2. DYAZIDE (HYDROCHLOROTHIAZIDE) [Concomitant]
  3. PROCARDIA [Concomitant]
  4. XIAFLEX [Suspect]
     Indication: DUPUYTREN'S CONTRACTURE
     Dosage: 1 IN 1 D, INTRALESIONAL
  5. LIPITOR [Concomitant]
  6. ALL OTHER THERAPEUTIC PRODUCTS (ALL OTHER THERAPEUTIC PRODUCTS) [Concomitant]
  7. ZYRTEC [Concomitant]

REACTIONS (1)
  - TENDON RUPTURE [None]
